FAERS Safety Report 10185163 (Version 1)
Quarter: 2014Q2

REPORT INFORMATION
  Report Type: Spontaneous
  Country: HU (occurrence: HU)
  Receive Date: 20140521
  Receipt Date: 20140521
  Transmission Date: 20141212
  Serious: Yes (Hospitalization)
  Sender: FDA-Public Use
  Company Number: HU-ASTRAZENECA-2014SE34225

PATIENT
  Age: 80 Year
  Sex: Male

DRUGS (1)
  1. SYMBICORT TURBUHALER [Suspect]
     Indication: CHRONIC OBSTRUCTIVE PULMONARY DISEASE
     Dosage: 4.5/160 MCG/DOSE, TWO TIMES A DAY
     Route: 055
     Dates: start: 201403, end: 20140508

REACTIONS (2)
  - Hypertension [Unknown]
  - Dyspnoea [Unknown]
